FAERS Safety Report 10079932 (Version 1)
Quarter: 2014Q2

REPORT INFORMATION
  Report Type: Spontaneous
  Country: GB (occurrence: GB)
  Receive Date: 20140415
  Receipt Date: 20140415
  Transmission Date: 20141212
  Serious: Yes (Other)
  Sender: FDA-Public Use
  Company Number: PHHY2014GB042401

PATIENT
  Age: 80 Year
  Sex: Female

DRUGS (7)
  1. ACECLOFENAC [Suspect]
     Dosage: UNK UKN, UNK
  2. FERROUS FUMARATE [Suspect]
     Indication: ANAEMIA
     Dosage: UNK UKN, UNK
  3. TRAMADOL [Suspect]
     Indication: SKIN ULCER
     Dosage: UNK UKN, UNK
  4. WARFARIN [Suspect]
     Dosage: 2.5 MG, UNK
  5. MACRODANTIN [Suspect]
     Indication: INFECTION
     Dosage: UNK UKN, UNK
     Route: 048
     Dates: start: 20140306, end: 20140309
  6. OXYCONTIN [Suspect]
     Dosage: 20 MG/40 MG
  7. ZINC [Suspect]
     Dosage: UNK UKN, UNK

REACTIONS (2)
  - Vision blurred [Not Recovered/Not Resolved]
  - Macular degeneration [Not Recovered/Not Resolved]
